FAERS Safety Report 4712372-9 (Version None)
Quarter: 2005Q3

REPORT INFORMATION
  Report Type: 
  Country: None (occurrence: None)
  Receive Date: 20050711
  Receipt Date: 20050629
  Transmission Date: 20060218
  Serious: Yes (Other)
  Sender: FDA-Public Use
  Company Number: 2005049311

PATIENT
  Age: 71 Year
  Sex: Female

DRUGS (8)
  1. ZOLOFT [Suspect]
     Indication: ANXIETY
     Dosage: 25 MG (25 MG, 1 IN 1), ORAL
     Route: 048
     Dates: start: 20050309, end: 20050407
  2. SYNTHROID [Concomitant]
  3. PAMELOR [Concomitant]
  4. BENTYL [Concomitant]
  5. ALDACTONE [Concomitant]
  6. ALTACE [Concomitant]
  7. VALIUM [Concomitant]
  8. VITAMINS [Concomitant]

REACTIONS (6)
  - ANXIETY [None]
  - CHEST PAIN [None]
  - HYPOAESTHESIA [None]
  - PAIN IN EXTREMITY [None]
  - PALPITATIONS [None]
  - VENTRICULAR HYPERTROPHY [None]
